FAERS Safety Report 5657214-2 (Version None)
Quarter: 2008Q1

REPORT INFORMATION
  Report Type: 
  Country: None (occurrence: None)
  Receive Date: 20080307
  Receipt Date: 20080307
  Transmission Date: 20080703
  Serious: Yes (Hospitalization)
  Sender: FDA-Public Use
  Company Number: None

PATIENT
  Age: 53 Year
  Sex: Male
  Weight: 101.6 kg

DRUGS (2)
  1. CIPROFLOXACIN [Suspect]
     Indication: INFECTION
     Dosage: 500MG  BID  PO
     Route: 048
     Dates: start: 20001107, end: 20001113
  2. ACYCLOVIR [Suspect]
     Indication: HERPES SIMPLEX
     Dosage: 200MG OTHER PO
     Route: 048
     Dates: start: 20001104, end: 20001113

REACTIONS (3)
  - PRURITUS [None]
  - RASH [None]
  - URTICARIA [None]
